FAERS Safety Report 7079858-6 (Version None)
Quarter: 2010Q4

REPORT INFORMATION
  Report Type: 
  Country: None (occurrence: None)
  Receive Date: 20101102
  Receipt Date: 20101025
  Transmission Date: 20110411
  Serious: Yes (Hospitalization)
  Sender: FDA-Public Use
  Company Number: FR-ABBOTT-10P-056-0652426-00

PATIENT
  Age: 47 Year
  Sex: Male

DRUGS (8)
  1. NORVIR [Suspect]
     Indication: HIV INFECTION
     Route: 048
     Dates: start: 20100426, end: 20100508
  2. BACTRIM [Suspect]
     Indication: PROPHYLAXIS
     Route: 048
     Dates: start: 20100414, end: 20100504
  3. REYATAZ [Suspect]
     Indication: HIV INFECTION
     Route: 048
     Dates: start: 20100426, end: 20100508
  4. TRUVADA [Suspect]
     Indication: HIV INFECTION
     Dates: start: 20100426, end: 20100508
  5. LYRICA [Concomitant]
     Indication: PRODUCT USED FOR UNKNOWN INDICATION
  6. TOPALGIC [Concomitant]
     Indication: PRODUCT USED FOR UNKNOWN INDICATION
  7. VALACYCLOVIR HYDROCHLORIDE [Concomitant]
     Indication: PRODUCT USED FOR UNKNOWN INDICATION
  8. TARKA [Concomitant]
     Indication: PRODUCT USED FOR UNKNOWN INDICATION

REACTIONS (7)
  - ABDOMINAL PAIN [None]
  - ASTHENIA [None]
  - CHILLS [None]
  - DRUG RASH WITH EOSINOPHILIA AND SYSTEMIC SYMPTOMS [None]
  - OLIGURIA [None]
  - SKIN BURNING SENSATION [None]
  - THIRST [None]
